FAERS Safety Report 6603541-1 (Version None)
Quarter: 2010Q1

REPORT INFORMATION
  Report Type: 
  Country: None (occurrence: None)
  Receive Date: 20100226
  Receipt Date: 20090921
  Transmission Date: 20100710
  Serious: No
  Sender: FDA-Public Use
  Company Number: A0808279A

PATIENT
  Age: 46 Year
  Sex: Male

DRUGS (2)
  1. VALTREX [Suspect]
     Indication: DRUG USE FOR UNKNOWN INDICATION
     Dosage: 1CAPL PER DAY
     Route: 048
     Dates: start: 20060101, end: 20060101
  2. NO CONCURRENT MEDICATION [Concomitant]

REACTIONS (1)
  - PRURITUS [None]
